FAERS Safety Report 7470046-8 (Version None)
Quarter: 2011Q2

REPORT INFORMATION
  Report Type: 
  Country: None (occurrence: None)
  Receive Date: 20110510
  Receipt Date: 20110504
  Transmission Date: 20111010
  Serious: Yes (Death)
  Sender: FDA-Public Use
  Company Number: IT-PFIZER INC-2011083986

PATIENT
  Age: 80 Year
  Sex: Female

DRUGS (1)
  1. AZITHROMYCIN [Suspect]

REACTIONS (5)
  - TOXIC EPIDERMAL NECROLYSIS [None]
  - RENAL FAILURE [None]
  - SEPSIS [None]
  - EPIDERMOLYSIS [None]
  - METABOLIC ACIDOSIS [None]
